FAERS Safety Report 8434994-4 (Version None)
Quarter: 2012Q2

REPORT INFORMATION
  Report Type: 
  Country: None (occurrence: None)
  Receive Date: 20120614
  Receipt Date: 20120611
  Transmission Date: 20120825
  Serious: Yes (Other)
  Sender: FDA-Public Use
  Company Number: US-PFIZER INC-2012105148

PATIENT
  Sex: Female
  Weight: 63.039 kg

DRUGS (3)
  1. ZOLOFT [Suspect]
     Indication: BIPOLAR DISORDER
     Dosage: 125 MG, UNK
  2. KLONOPIN [Suspect]
     Indication: BIPOLAR DISORDER
     Dosage: 50 MG, DAILY
  3. ZOLOFT [Suspect]
     Dosage: 25 MG, UNK

REACTIONS (2)
  - MANIA [None]
  - HYPOMANIA [None]
